FAERS Safety Report 7292027-X (Version None)
Quarter: 2011Q1

REPORT INFORMATION
  Report Type: 
  Country: None (occurrence: None)
  Receive Date: 20110215
  Receipt Date: 20110203
  Transmission Date: 20110831
  Serious: Yes (Hospitalization)
  Sender: FDA-Public Use
  Company Number: US-BIOGENIDEC-2011BI004096

PATIENT
  Age: 44 Year
  Sex: Female
  Weight: 81 kg

DRUGS (2)
  1. TYSABRI [Suspect]
     Indication: MULTIPLE SCLEROSIS
     Route: 042
     Dates: start: 20070901, end: 20080101
  2. TYSABRI [Suspect]
     Route: 042
     Dates: end: 20100801

REACTIONS (4)
  - MIDDLE EAR EFFUSION [None]
  - MELANOCYTIC NAEVUS [None]
  - HYPOACUSIS [None]
  - CRYING [None]
